FAERS Safety Report 5658427-6 (Version None)
Quarter: 2008Q1

REPORT INFORMATION
  Report Type: 
  Country: None (occurrence: None)
  Receive Date: 20080310
  Receipt Date: 20070502
  Transmission Date: 20080703
  Serious: No
  Sender: FDA-Public Use
  Company Number: US-BAYER-200710486BCC

PATIENT
  Sex: Male
  Weight: 91 kg

DRUGS (13)
  1. ALEVE [Suspect]
     Indication: ARTHRALGIA
     Dosage: TOTAL DAILY DOSE: 220 MG  UNIT DOSE: 220 MG
     Route: 048
  2. ALEVE [Suspect]
     Dosage: UNIT DOSE: 220 MG
     Route: 048
  3. GEMFIBROZIL [Concomitant]
  4. CRESTOR [Concomitant]
  5. CARDIZEM [Concomitant]
  6. TOPROL [Concomitant]
  7. TRIAMTERINE HTCZ [Concomitant]
  8. AVAPRO [Concomitant]
  9. SAM ASPIRIN [Concomitant]
     Route: 048
  10. GLUCOSAMINE WITH CHONDROITIN [Concomitant]
  11. TYLENOL (CAPLET) [Concomitant]
  12. LIPOFLAVONOID [Concomitant]
  13. FISH OIL [Concomitant]

REACTIONS (2)
  - ARTHRALGIA [None]
  - HEART RATE IRREGULAR [None]
